FAERS Safety Report 7215878-6 (Version None)
Quarter: 2011Q1

REPORT INFORMATION
  Report Type: 
  Country: None (occurrence: None)
  Receive Date: 20110104
  Receipt Date: 20110104
  Transmission Date: 20110831
  Serious: Yes (Other)
  Sender: FDA-Public Use
  Company Number: None

PATIENT
  Sex: Female
  Weight: 90.7194 kg

DRUGS (2)
  1. ZOLOFT [Suspect]
     Indication: ANXIETY
     Dosage: 50 MG 1X DAILY PO
     Route: 048
     Dates: start: 20020101, end: 20101224
  2. ZOLOFT [Suspect]
     Indication: DEPRESSION
     Dosage: 50 MG 1X DAILY PO
     Route: 048
     Dates: start: 20020101, end: 20101224

REACTIONS (7)
  - PARAESTHESIA [None]
  - EYE PRURITUS [None]
  - DRUG INEFFECTIVE [None]
  - DRY MOUTH [None]
  - HEPATIC ENZYME INCREASED [None]
  - BRADYPHRENIA [None]
  - WEIGHT INCREASED [None]
